FAERS Safety Report 9917846 (Version 1)
Quarter: 2014Q1

REPORT INFORMATION
  Report Type: Spontaneous
  Country: CA (occurrence: CA)
  Receive Date: 20140221
  Receipt Date: 20140221
  Transmission Date: 20141002
  Serious: Yes (Hospitalization)
  Sender: FDA-Public Use
  Company Number: CA-GLAXOSMITHKLINE-A1061244A

PATIENT
  Sex: Male

DRUGS (2)
  1. ADVAIR [Suspect]
     Indication: CHRONIC OBSTRUCTIVE PULMONARY DISEASE
     Route: 065
  2. UNKNOWN MEDICATION [Concomitant]
     Indication: OSTEITIS DEFORMANS

REACTIONS (3)
  - Addison^s disease [Recovered/Resolved]
  - Hypotension [Recovered/Resolved]
  - Off label use [Unknown]
